FAERS Safety Report 4982903-2 (Version None)
Quarter: 2006Q2

REPORT INFORMATION
  Report Type: 
  Country: None (occurrence: None)
  Receive Date: 20060420
  Receipt Date: 20060410
  Transmission Date: 20061013
  Serious: Yes (Hospitalization)
  Sender: FDA-Public Use
  Company Number: 2005BI019754

PATIENT
  Age: 35 Year
  Sex: Female

DRUGS (10)
  1. AVONEX [Suspect]
     Indication: MULTIPLE SCLEROSIS
     Dosage: 30 UG; QW; IM
     Route: 030
     Dates: start: 19990101
  2. AVONEX [Suspect]
     Indication: MULTIPLE SCLEROSIS
     Dosage: 30 UG; QW; IM
     Route: 030
     Dates: end: 20051020
  3. BACLOFEN [Concomitant]
  4. DURAGESIC-100 [Concomitant]
  5. CYLERT [Concomitant]
  6. LUNESTA [Concomitant]
  7. XANAX [Concomitant]
  8. PAXIL [Concomitant]
  9. ZANAFLEX [Concomitant]
  10. NEURONTIN [Concomitant]

REACTIONS (3)
  - COMA [None]
  - DEPRESSION [None]
  - SUICIDE ATTEMPT [None]
